FAERS Safety Report 25006059 (Version 5)
Quarter: 2025Q2

REPORT INFORMATION
  Report Type: Spontaneous
  Country: US (occurrence: US)
  Receive Date: 20250224
  Receipt Date: 20250418
  Transmission Date: 20250716
  Serious: Yes (Life-Threatening)
  Sender: PFIZER
  Company Number: US-PFIZER INC-PV202500021752

PATIENT
  Age: 28 Year
  Sex: Female

DRUGS (3)
  1. METHYLPREDNISOLONE SODIUM SUCCINATE [Suspect]
     Active Substance: METHYLPREDNISOLONE SODIUM SUCCINATE
     Indication: Graft versus host disease
  2. METHYLPREDNISOLONE SODIUM SUCCINATE [Suspect]
     Active Substance: METHYLPREDNISOLONE SODIUM SUCCINATE
  3. POSACONAZOLE [Concomitant]
     Active Substance: POSACONAZOLE
     Indication: Antifungal prophylaxis

REACTIONS (1)
  - Drug ineffective [Unknown]
